FAERS Safety Report 5287633-8 (Version None)
Quarter: 2007Q1

REPORT INFORMATION
  Report Type: 
  Country: None (occurrence: None)
  Receive Date: 20070103
  Receipt Date: 20060809
  Transmission Date: 20070707
  Serious: Yes (Hospitalization)
  Sender: FDA-Public Use
  Company Number: A03200605028

PATIENT

DRUGS (2)
  1. DEMEROL [Suspect]
     Indication: ABDOMINAL PAIN UPPER
  2. ESCITALOPRAM [Suspect]
     Dosage: ORAL
     Route: 048

REACTIONS (2)
  - DRUG INTERACTION [None]
  - PYREXIA [None]
